FAERS Safety Report 7797333-8 (Version None)
Quarter: 2011Q4

REPORT INFORMATION
  Report Type: 
  Country: None (occurrence: None)
  Receive Date: 20111005
  Receipt Date: 20110930
  Transmission Date: 20120403
  Serious: Yes (Death)
  Sender: FDA-Public Use
  Company Number: JP-SANOFI-AVENTIS-2011SA049330

PATIENT
  Age: 74 Year
  Sex: Male
  Weight: 63.8 kg

DRUGS (24)
  1. CLOPIDOGREL BISULFATE [Suspect]
     Route: 048
     Dates: start: 20080603, end: 20080611
  2. GASMOTIN [Concomitant]
     Indication: PROPHYLAXIS
     Route: 048
     Dates: start: 20080606, end: 20080611
  3. MARZULENE S [Concomitant]
     Indication: PROPHYLAXIS
     Route: 048
     Dates: start: 20080606, end: 20080611
  4. CLINDAMYCIN [Concomitant]
     Dates: start: 20080608, end: 20080611
  5. ASPIRIN [Concomitant]
     Indication: ACUTE MYOCARDIAL INFARCTION
     Route: 048
     Dates: start: 20080602, end: 20080611
  6. CLOPIDOGREL BISULFATE [Suspect]
     Indication: ACUTE MYOCARDIAL INFARCTION
     Route: 048
     Dates: start: 20080602, end: 20080602
  7. IOMEPROL [Suspect]
     Indication: ARTERIOGRAM CORONARY
     Route: 065
     Dates: start: 20080602
  8. SIGMART [Concomitant]
     Indication: ACUTE MYOCARDIAL INFARCTION
     Route: 041
     Dates: start: 20080602, end: 20080604
  9. BUPRENORPHINE HCL [Concomitant]
     Indication: SEDATION
     Route: 041
     Dates: start: 20080605, end: 20080606
  10. PROPOFOL [Concomitant]
     Indication: SEDATION
     Route: 041
     Dates: start: 20080606, end: 20080611
  11. HEPARIN SODIUM [Concomitant]
     Route: 041
     Dates: start: 20080602, end: 20080605
  12. ENALAPRIL MALEATE [Concomitant]
     Indication: ACUTE MYOCARDIAL INFARCTION
     Route: 048
     Dates: start: 20080602, end: 20080605
  13. MIDAZOLAM HCL [Concomitant]
     Indication: SEDATION
     Route: 041
     Dates: start: 20080605, end: 20080606
  14. PROSTARMON F [Concomitant]
     Indication: PROPHYLAXIS
  15. HEPARIN SODIUM [Concomitant]
     Indication: ACUTE MYOCARDIAL INFARCTION
     Route: 042
     Dates: start: 20080602, end: 20080602
  16. LIPITOR [Concomitant]
     Indication: PROPHYLAXIS
     Route: 048
     Dates: start: 20080602, end: 20080605
  17. OMEPRAZOLE [Concomitant]
     Indication: PROPHYLAXIS
     Route: 048
     Dates: start: 20080602, end: 20080605
  18. HERBESSER ^TANABE^ [Concomitant]
     Indication: HEART RATE INCREASED
     Route: 041
     Dates: start: 20080605, end: 20080611
  19. BISOLVON [Concomitant]
     Dates: start: 20080608, end: 20080611
  20. PRIMPERAN TAB [Concomitant]
     Indication: PROPHYLAXIS
     Route: 042
     Dates: start: 20080609, end: 20080611
  21. PANTOSIN [Concomitant]
     Indication: PROPHYLAXIS
     Route: 042
     Dates: start: 20080608, end: 20080611
  22. OMEPRAZOLE [Concomitant]
     Route: 065
     Dates: start: 20080606, end: 20080611
  23. MAGNESIUM OXIDE [Concomitant]
     Indication: PROPHYLAXIS
     Route: 048
     Dates: start: 20080606, end: 20080611
  24. SUCRALFATE [Concomitant]
     Indication: PROPHYLAXIS
     Route: 048
     Dates: start: 20080606, end: 20080611

REACTIONS (7)
  - PYREXIA [None]
  - OEDEMA [None]
  - SHOCK [None]
  - CARDIAC FAILURE [None]
  - PNEUMONIA [None]
  - RENAL FAILURE [None]
  - OLIGURIA [None]
